FAERS Safety Report 8191447-9 (Version None)
Quarter: 2012Q1

REPORT INFORMATION
  Report Type: 
  Country: None (occurrence: None)
  Receive Date: 20120307
  Receipt Date: 20120210
  Transmission Date: 20120608
  Serious: No
  Sender: FDA-Public Use
  Company Number: US-ASTRAZENECA-2012SE01961

PATIENT
  Age: 49 Year
  Sex: Female

DRUGS (4)
  1. OTHER MIGRAINE MEDICATIONS [Concomitant]
  2. ZOMIG [Suspect]
     Route: 048
  3. IMITREX [Concomitant]
     Indication: MIGRAINE
  4. NEXIUM [Suspect]
     Route: 048

REACTIONS (3)
  - MIGRAINE [None]
  - DRUG DOSE OMISSION [None]
  - HEADACHE [None]
